FAERS Safety Report 18775525 (Version 2)
Quarter: 2021Q1

REPORT INFORMATION
  Report Type: Report from Study
  Country: JP (occurrence: JP)
  Receive Date: 20210122
  Receipt Date: 20210212
  Transmission Date: 20210419
  Serious: Yes (Hospitalization)
  Sender: FDA-Public Use
  Company Number: JP-JNJFOC-20210133610

PATIENT
  Age: 89 Year
  Sex: Male
  Weight: 62 kg

DRUGS (2)
  1. ERLEADA [Suspect]
     Active Substance: APALUTAMIDE
     Indication: HORMONE-REFRACTORY PROSTATE CANCER
     Dosage: DOSE UNKNOWN
     Route: 048
     Dates: start: 20200915
  2. HEPARINOID [Concomitant]
     Active Substance: CHONDROITIN SULFATE (BOVINE)
     Indication: DRUG ERUPTION
     Dosage: DOSE UNKNOWN
     Route: 061

REACTIONS (1)
  - Drug eruption [Recovering/Resolving]

NARRATIVE: CASE EVENT DATE: 20201117
